FAERS Safety Report 9434568 (Version 6)
Quarter: 2013Q4

REPORT INFORMATION
  Report Type: Spontaneous
  Country: US (occurrence: US)
  Receive Date: 20130801
  Receipt Date: 20131010
  Transmission Date: 20140711
  Serious: Yes (Other)
  Sender: FDA-Public Use
  Company Number: US-PFIZER INC-2013223229

PATIENT
  Age: 66 Year
  Sex: Female
  Weight: 68.03 kg

DRUGS (4)
  1. LYRICA [Suspect]
     Indication: FIBROMYALGIA
     Dosage: 100 MG, 3X/DAY
     Route: 048
     Dates: end: 201307
  2. LYRICA [Suspect]
     Indication: NEURALGIA
  3. BUPROPION [Concomitant]
     Dosage: 200 MG, 1X/DAY
  4. BACLOFEN [Concomitant]
     Dosage: 10 MG, 3X/DAY

REACTIONS (10)
  - Lung neoplasm malignant [Unknown]
  - Addison^s disease [Unknown]
  - Intentional drug misuse [Unknown]
  - Pain [Unknown]
  - Drug withdrawal syndrome [Unknown]
  - Paraesthesia [Unknown]
  - Tremor [Unknown]
  - Nausea [Unknown]
  - Dizziness [Unknown]
  - Hyperhidrosis [Unknown]
